FAERS Safety Report 8503991 (Version 2)
Quarter: 2013Q4

REPORT INFORMATION
  Report Type: Spontaneous
  Country: US (occurrence: US)
  Receive Date: 20120411
  Receipt Date: 20131101
  Transmission Date: 20140711
  Serious: Yes (Other)
  Sender: FDA-Public Use
  Company Number: US-ROCHE-794326

PATIENT
  Sex: Female
  Weight: 54.48 kg

DRUGS (1)
  1. ACCUTANE [Suspect]
     Indication: PRODUCT USED FOR UNKNOWN INDICATION
     Route: 065

REACTIONS (6)
  - Crohn^s disease [Unknown]
  - Colitis ulcerative [Unknown]
  - Irritable bowel syndrome [Unknown]
  - Inflammatory bowel disease [Unknown]
  - Large intestine polyp [Unknown]
  - Depression [Unknown]
